FAERS Safety Report 7179597-7 (Version None)
Quarter: 2010Q4

REPORT INFORMATION
  Report Type: 
  Country: None (occurrence: None)
  Receive Date: 20101208
  Receipt Date: 20080603
  Transmission Date: 20110411
  Serious: Yes (Death)
  Sender: FDA-Public Use
  Company Number: UTC-002630

PATIENT
  Age: 19 Year
  Sex: Female

DRUGS (1)
  1. REMODULIN [Suspect]
     Dosage: INTRAVENOUS
     Route: 042

REACTIONS (1)
  - DEATH [None]
